FAERS Safety Report 6332262-8 (Version None)
Quarter: 2009Q3

REPORT INFORMATION
  Report Type: 
  Country: None (occurrence: None)
  Receive Date: 20090827
  Receipt Date: 20090827
  Transmission Date: 20100115
  Serious: Yes (Hospitalization)
  Sender: FDA-Public Use
  Company Number: None

PATIENT
  Age: 77 Year
  Sex: Male
  Weight: 77 kg

DRUGS (17)
  1. ALIMTA [Suspect]
     Indication: NON-SMALL CELL LUNG CANCER
     Dosage: 281.25 MG/M2 Q 21 DAYS
     Dates: start: 20090708, end: 20090819
  2. TARCEVA [Suspect]
     Indication: NON-SMALL CELL LUNG CANCER
     Dosage: 50 MG PO DAILY
     Route: 048
     Dates: start: 20090708, end: 20090826
  3. LISINOPRIL [Concomitant]
  4. METOPROLOL [Concomitant]
  5. IMDUR [Concomitant]
  6. PLAVIX [Concomitant]
  7. PRAVASTATIN [Concomitant]
  8. ASPIRIN [Concomitant]
  9. ARICEPT [Concomitant]
  10. COLACE [Concomitant]
  11. VITAMIN D [Concomitant]
  12. ADVAIR DISKUS 100/50 [Concomitant]
  13. SPIRIVA [Concomitant]
  14. PREDNISONE [Concomitant]
  15. BENADRYL [Concomitant]
  16. VITAMIN B-12 [Concomitant]
  17. FOLIC ACID [Concomitant]

REACTIONS (6)
  - DECREASED APPETITE [None]
  - DEHYDRATION [None]
  - FATIGUE [None]
  - HYPOPHAGIA [None]
  - HYPOTENSION [None]
  - INAPPROPRIATE ANTIDIURETIC HORMONE SECRETION [None]
